FAERS Safety Report 9021901 (Version 1)
Quarter: 2013Q1

REPORT INFORMATION
  Report Type: Spontaneous
  Country: JP (occurrence: JP)
  Receive Date: 20130118
  Receipt Date: 20130118
  Transmission Date: 20140127
  Serious: Yes (Death)
  Sender: FDA-Public Use
  Company Number: JP-JNJFOC-20121208732

PATIENT
  Age: 74 Year
  Sex: Male

DRUGS (7)
  1. TRAMCET [Suspect]
     Indication: PAIN
     Dosage: ONCE DAILY
     Route: 048
     Dates: start: 20121206, end: 20121212
  2. ENBREL [Suspect]
     Indication: RHEUMATOID ARTHRITIS
     Dosage: ONCE WEEKLY
     Route: 058
  3. NAUZELIN [Concomitant]
     Indication: PROPHYLAXIS OF NAUSEA AND VOMITING
     Route: 048
     Dates: start: 20121206
  4. NAUZELIN [Concomitant]
     Indication: PROPHYLAXIS OF NAUSEA AND VOMITING
     Route: 048
     Dates: start: 20121206
  5. ARGAMATE [Concomitant]
     Indication: PRODUCT USED FOR UNKNOWN INDICATION
     Route: 048
  6. LYRICA [Concomitant]
     Indication: RHEUMATOID ARTHRITIS
     Dosage: 2 PER 1 DAY
     Route: 048
  7. LOXONIN [Concomitant]
     Indication: RHEUMATOID ARTHRITIS
     Dosage: 1 PER 1 DAY
     Route: 048

REACTIONS (2)
  - Pulmonary oedema [Fatal]
  - Lung neoplasm malignant [Fatal]
